FAERS Safety Report 16463490 (Version 1)
Quarter: 2019Q2

REPORT INFORMATION
  Report Type: Spontaneous
  Country: US (occurrence: US)
  Receive Date: 20190621
  Receipt Date: 20190621
  Transmission Date: 20190711
  Serious: Yes (Hospitalization, Other)
  Sender: FDA-Public Use
  Company Number: US-APOTEX-2019AP016888

PATIENT
  Age: 45 Year
  Sex: Male

DRUGS (6)
  1. GABAPENTIN. [Suspect]
     Active Substance: GABAPENTIN
     Indication: PRODUCT USED FOR UNKNOWN INDICATION
     Dosage: 6 %, UNK (360 G DISPENSED)
     Route: 048
  2. AMITRIPTYLINE [Suspect]
     Active Substance: AMITRIPTYLINE
     Indication: PRODUCT USED FOR UNKNOWN INDICATION
     Dosage: 2 %, UNK (OF 360 G DISPENSED)
     Route: 048
  3. PRILOCAINE [Suspect]
     Active Substance: PRILOCAINE
     Indication: PRODUCT USED FOR UNKNOWN INDICATION
     Dosage: 1.75 %, UNK (OF 360 G DISPENSED)
     Route: 048
  4. MELOXICAM. [Suspect]
     Active Substance: MELOXICAM
     Indication: PRODUCT USED FOR UNKNOWN INDICATION
     Dosage: 0.5 %, UNK (OF 360 G DISPENSED)
     Route: 048
  5. LIDOCAINE                          /00033402/ [Suspect]
     Active Substance: LIDOCAINE
     Indication: PRODUCT USED FOR UNKNOWN INDICATION
     Dosage: 1.75 %, UNK (OF 360 G DISPENSED)
     Route: 048
  6. BACLOFEN. [Suspect]
     Active Substance: BACLOFEN
     Indication: PRODUCT USED FOR UNKNOWN INDICATION
     Dosage: 2 %, UNK (OF 360 G DISPENSED)
     Route: 048

REACTIONS (12)
  - Respiratory failure [Unknown]
  - Electrocardiogram QRS complex prolonged [Unknown]
  - Incorrect route of product administration [Unknown]
  - Unresponsive to stimuli [Recovering/Resolving]
  - Product preparation error [Unknown]
  - Depressed level of consciousness [Unknown]
  - Overdose [Unknown]
  - Coma [Recovering/Resolving]
  - Mental status changes [Recovering/Resolving]
  - Substance use [Unknown]
  - Toxicity to various agents [Unknown]
  - Cardiotoxicity [Unknown]
